FAERS Safety Report 8905228 (Version 1)
Quarter: 2012Q4

REPORT INFORMATION
  Report Type: 
  Country: IT (occurrence: IT)
  Receive Date: 20121113
  Receipt Date: 20121113
  Transmission Date: 20130627
  Serious: Yes (Hospitalization)
  Sender: FDA-Public Use
  Company Number: IT-009507513-1211ITA004221

PATIENT
  Sex: Female

DRUGS (1)
  1. NUVARING [Suspect]
     Indication: CONTRACEPTION
     Dosage: 11.7mg+2.7mg
     Route: 067
     Dates: start: 2007, end: 20110207

REACTIONS (15)
  - Chalazion [Recovered/Resolved]
  - Chalazion [Recovered/Resolved]
  - Chalazion [Recovered/Resolved]
  - Chalazion [Recovered/Resolved]
  - Lacrimation increased [Recovered/Resolved]
  - Eye abscess [Recovered/Resolved]
  - Eye abscess [Recovered/Resolved]
  - Eye abscess [Recovered/Resolved]
  - Eye abscess [Recovered/Resolved]
  - Eye abscess [Recovered/Resolved]
  - Eye abscess [Recovered/Resolved]
  - Rhinalgia [Recovered/Resolved]
  - Pain in jaw [Recovered/Resolved]
  - Eyelid pain [Recovered/Resolved]
  - Malaise [Recovered/Resolved]
